FAERS Safety Report 18956829 (Version 2)
Quarter: 2021Q1

REPORT INFORMATION
  Report Type: Report from Study
  Country: US (occurrence: US)
  Receive Date: 20210302
  Receipt Date: 20210312
  Transmission Date: 20210420
  Serious: Yes (Other)
  Sender: FDA-Public Use
  Company Number: US-HBP-2021US021675

PATIENT
  Age: 72 Year
  Sex: Female

DRUGS (1)
  1. VALCHLOR [Suspect]
     Active Substance: MECHLORETHAMINE
     Indication: CUTANEOUS T-CELL LYMPHOMA
     Dosage: UNK, QD
     Route: 061
     Dates: start: 2020

REACTIONS (8)
  - Tumour rupture [Unknown]
  - Lymphadenectomy [Unknown]
  - Neoplasm skin [Unknown]
  - Infection [Unknown]
  - Application site pain [Recovered/Resolved]
  - Application site swelling [Recovered/Resolved]
  - Skin lesion removal [Unknown]
  - Lymphadenopathy [Recovered/Resolved]

NARRATIVE: CASE EVENT DATE: 2021
